FAERS Safety Report 11571079 (Version 2)
Quarter: 2015Q4

REPORT INFORMATION
  Report Type: Report from Study
  Country: US (occurrence: US)
  Receive Date: 20150929
  Receipt Date: 20151009
  Transmission Date: 20160304
  Serious: Yes (Hospitalization, Other)
  Sender: FDA-Public Use
  Company Number: US-GILEAD-2015-0174295

PATIENT
  Age: 63 Year
  Sex: Female

DRUGS (20)
  1. AMBRISENTAN [Suspect]
     Active Substance: AMBRISENTAN
     Indication: PULMONARY HYPERTENSION
     Dosage: 10 MG, QD
     Route: 065
     Dates: start: 20141013
  2. CALCIUM [Concomitant]
     Active Substance: CALCIUM
  3. COLCRYS [Concomitant]
     Active Substance: COLCHICINE
  4. COUMADIN [Concomitant]
     Active Substance: WARFARIN SODIUM
  5. CLARITIN [Concomitant]
     Active Substance: LORATADINE
  6. VENTOLIN [Concomitant]
     Active Substance: ALBUTEROL SULFATE
  7. GLYBURIDE. [Concomitant]
     Active Substance: GLYBURIDE
  8. LOPRESSOR [Concomitant]
     Active Substance: METOPROLOL TARTRATE
  9. TOPAMAX [Concomitant]
     Active Substance: TOPIRAMATE
  10. AMBIEN [Concomitant]
     Active Substance: ZOLPIDEM TARTRATE
  11. DIGOXIN. [Concomitant]
     Active Substance: DIGOXIN
  12. NEURONTIN [Concomitant]
     Active Substance: GABAPENTIN
  13. NIFEDIPINE. [Concomitant]
     Active Substance: NIFEDIPINE
  14. NEXIUM [Concomitant]
     Active Substance: ESOMEPRAZOLE MAGNESIUM
  15. LEXAPRO [Concomitant]
     Active Substance: ESCITALOPRAM OXALATE
  16. BUSPIRONE [Concomitant]
     Active Substance: BUSPIRONE HYDROCHLORIDE
  17. FERROUS SULFATE [Concomitant]
     Active Substance: FERROUS SULFATE\FERROUS SULFATE, DRIED
  18. REMODULIN [Concomitant]
     Active Substance: TREPROSTINIL
  19. PRAVACHOL [Concomitant]
     Active Substance: PRAVASTATIN SODIUM
  20. SYMBICORT [Concomitant]
     Active Substance: BUDESONIDE\FORMOTEROL FUMARATE DIHYDRATE

REACTIONS (1)
  - Pneumonia [Recovered/Resolved]

NARRATIVE: CASE EVENT DATE: 20150909
